FAERS Safety Report 8310212 (Version 2)
Quarter: 2018Q1

REPORT INFORMATION
  Report Type: Spontaneous
  Country: GB (occurrence: GB)
  Receive Date: 20111223
  Receipt Date: 20180226
  Transmission Date: 20180509
  Serious: Yes (Other)
  Sender: FDA-Public Use
  Company Number: GB-PFIZER INC-2011309592

PATIENT
  Age: 60 Year

DRUGS (7)
  1. VALSARTAN. [Suspect]
     Active Substance: VALSARTAN
     Dosage: 120 MG, DAILY
  2. CETIRIZINE HYDROCHLORIDE. [Suspect]
     Active Substance: CETIRIZINE HYDROCHLORIDE
     Dosage: 10 MG, 1X/DAY
  3. DOXAZOSIN MESILATE [Suspect]
     Active Substance: DOXAZOSIN MESYLATE
     Dosage: 4 MG, DAILY
  4. ALLOPURINOL. [Suspect]
     Active Substance: ALLOPURINOL
     Dosage: 300 MG, DAILY
  5. METFORMIN HCL [Suspect]
     Active Substance: METFORMIN HYDROCHLORIDE
     Dosage: 1500 MG, DAILY
  6. COLCHICINE. [Suspect]
     Active Substance: COLCHICINE
     Dosage: 1 MG, DAILY
  7. MIRTAZAPINE. [Suspect]
     Active Substance: MIRTAZAPINE
     Indication: DEPRESSION
     Dosage: UNK

REACTIONS (1)
  - Pancreatitis acute [Unknown]
